FAERS Safety Report 9690787 (Version 1)
Quarter: 2013Q4

REPORT INFORMATION
  Report Type: Spontaneous
  Country: US (occurrence: None)
  Receive Date: 20131114
  Receipt Date: 20131114
  Transmission Date: 20140711
  Serious: Yes (Hospitalization)
  Sender: FDA-Public Use
  Company Number: None

PATIENT
  Age: 66 Year
  Sex: Male
  Weight: 86 kg

DRUGS (1)
  1. RIVAROXABAN 10 MG JANSSEN [Suspect]
     Indication: DEEP VEIN THROMBOSIS
     Route: 048

REACTIONS (5)
  - Acute respiratory failure [None]
  - Disseminated intravascular coagulation [None]
  - Haemoptysis [None]
  - Haematuria [None]
  - Off label use [None]
